FAERS Safety Report 9108691 (Version 3)
Quarter: 2013Q2

REPORT INFORMATION
  Report Type: Spontaneous
  Country: US (occurrence: US)
  Receive Date: 20130222
  Receipt Date: 20130509
  Transmission Date: 20140414
  Serious: No
  Sender: FDA-Public Use
  Company Number: US-PFIZER INC-2013067249

PATIENT
  Age: 39 Year
  Sex: Female

DRUGS (1)
  1. LYRICA [Suspect]
     Dosage: 75 MG 1 TABLET, 2X/DAY
     Route: 048

REACTIONS (4)
  - Hot flush [Unknown]
  - Dizziness [Unknown]
  - Hyperhidrosis [Unknown]
  - Nausea [Unknown]
